FAERS Safety Report 6974518-1 (Version None)
Quarter: 2010Q3

REPORT INFORMATION
  Report Type: 
  Country: None (occurrence: None)
  Receive Date: 20100909
  Receipt Date: 20080717
  Transmission Date: 20110219
  Serious: No
  Sender: FDA-Public Use
  Company Number: US-WYE-H05183908

PATIENT
  Sex: Female
  Weight: 68.1 kg

DRUGS (3)
  1. PROTONIX [Suspect]
     Indication: GASTROOESOPHAGEAL REFLUX DISEASE
     Route: 048
     Dates: start: 20080601, end: 20080701
  2. HYDROCHLOROTHIAZIDE [Concomitant]
  3. TOPROL-XL [Concomitant]

REACTIONS (4)
  - FAECES DISCOLOURED [None]
  - HAEMOGLOBIN DECREASED [None]
  - PAIN OF SKIN [None]
  - SKIN DISCOLOURATION [None]
